FAERS Safety Report 13187677 (Version 1)
Quarter: 2017Q1

REPORT INFORMATION
  Report Type: Spontaneous
  Country: US (occurrence: US)
  Receive Date: 20170206
  Receipt Date: 20170206
  Transmission Date: 20170428
  Serious: No
  Sender: FDA-Public Use
  Company Number: US-PFIZER INC-2017051148

PATIENT
  Sex: Female

DRUGS (3)
  1. FUROSEMIDE. [Suspect]
     Active Substance: FUROSEMIDE
     Indication: DIURETIC THERAPY
     Dosage: 40 MG, ONE TABLET PER DAY
  2. ASPIRIN /00002701/ [Concomitant]
     Active Substance: ASPIRIN
  3. ADVIL [Suspect]
     Active Substance: IBUPROFEN
     Indication: SPINAL COLUMN STENOSIS

REACTIONS (4)
  - Eructation [Unknown]
  - Feeling abnormal [Unknown]
  - Rash pruritic [Unknown]
  - Rash [Unknown]
